FAERS Safety Report 12542929 (Version 1)
Quarter: 2016Q3

REPORT INFORMATION
  Report Type: Spontaneous
  Country: AU (occurrence: AU)
  Receive Date: 20160710
  Receipt Date: 20160710
  Transmission Date: 20161109
  Serious: Yes (Other)
  Sender: FDA-Public Use
  Company Number: AU-GALDERMA-AU16004600

PATIENT
  Sex: Male

DRUGS (1)
  1. MIRVASO [Suspect]
     Active Substance: BRIMONIDINE TARTRATE
     Indication: ROSACEA
     Route: 061

REACTIONS (3)
  - Drug dependence [Not Recovered/Not Resolved]
  - Rebound effect [Not Recovered/Not Resolved]
  - Flushing [Not Recovered/Not Resolved]
